FAERS Safety Report 8272403-9 (Version None)
Quarter: 2012Q2

REPORT INFORMATION
  Report Type: 
  Country: None (occurrence: None)
  Receive Date: 20120410
  Receipt Date: 20120330
  Transmission Date: 20120825
  Serious: Yes (Other)
  Sender: FDA-Public Use
  Company Number: ES-JNJFOC-20120401611

PATIENT
  Age: 30 Year
  Sex: Male

DRUGS (8)
  1. ACETAZOLAMIDE [Concomitant]
  2. TRIAMCINOLONE [Suspect]
     Indication: BEHCET'S SYNDROME
     Route: 050
  3. COLCHICINE [Concomitant]
  4. INFLIXIMAB, RECOMBINANT [Suspect]
     Indication: PRODUCT USED FOR UNKNOWN INDICATION
     Dosage: WEEKS 2, 6, AND 8
     Route: 042
     Dates: start: 20100101, end: 20100401
  5. ADALIMUMAB [Suspect]
     Indication: PRODUCT USED FOR UNKNOWN INDICATION
     Route: 065
     Dates: start: 20100401
  6. MYDRIATICS AND CYCLOPLEGICS [Concomitant]
  7. PREDNISONE [Concomitant]
  8. CORTICOSTEROID [Concomitant]
     Route: 061

REACTIONS (7)
  - FOLLICULITIS [None]
  - THROMBOPHLEBITIS [None]
  - IRIDOCYCLITIS [None]
  - NAUSEA [None]
  - OCULAR VASCULITIS [None]
  - VOMITING [None]
  - GLAUCOMA [None]
